FAERS Safety Report 18911304 (Version 4)
Quarter: 2022Q1

REPORT INFORMATION
  Report Type: Spontaneous
  Country: US (occurrence: US)
  Receive Date: 20210218
  Receipt Date: 20220118
  Transmission Date: 20220424
  Serious: No
  Sender: FDA-Public Use
  Company Number: US-PFIZER INC-2021145255

PATIENT
  Age: 74 Year
  Sex: Female

DRUGS (2)
  1. LATANOPROST [Suspect]
     Active Substance: LATANOPROST
     Indication: Glaucoma
     Dosage: 1 DROP, 1X/DAY (INSTILL 1 DROP IN BOTH EYES AT BEDTIME)
     Route: 047
  2. ESTROGENS, CONJUGATED [Suspect]
     Active Substance: ESTROGENS, CONJUGATED
     Indication: Hormone therapy
     Dosage: UNK

REACTIONS (7)
  - Drug ineffective [Unknown]
  - Drug hypersensitivity [Unknown]
  - Dizziness [Unknown]
  - Illness [Unknown]
  - Feeling abnormal [Unknown]
  - Headache [Unknown]
  - Balance disorder [Unknown]
